FAERS Safety Report 6980331-1 (Version None)
Quarter: 2010Q3

REPORT INFORMATION
  Report Type: 
  Country: None (occurrence: None)
  Receive Date: 20100914
  Receipt Date: 20100906
  Transmission Date: 20110219
  Serious: Yes (Hospitalization, Other)
  Sender: FDA-Public Use
  Company Number: BR-ROCHE-726101

PATIENT
  Age: 78 Year
  Sex: Female
  Weight: 64 kg

DRUGS (6)
  1. BONIVA [Suspect]
     Indication: OSTEOPOROSIS
     Route: 048
     Dates: start: 20080101, end: 20080101
  2. CALCIUM [Concomitant]
     Route: 048
  3. OMEPRAZOLE [Concomitant]
     Indication: GASTRIC DISORDER
     Route: 048
  4. ABLOK [Concomitant]
     Indication: BLOOD PRESSURE ABNORMAL
     Route: 048
  5. MOTILIUM [Concomitant]
     Indication: GASTRIC DISORDER
     Route: 048
  6. LIPITOR [Concomitant]
     Indication: GASTRIC DISORDER
     Route: 048

REACTIONS (7)
  - ANGINA PECTORIS [None]
  - BONE DISORDER [None]
  - CONVULSION [None]
  - HEMIPLEGIA [None]
  - PANCREATITIS [None]
  - THYROID DISORDER [None]
  - WEIGHT DECREASED [None]
